FAERS Safety Report 17756411 (Version 1)
Quarter: 2020Q2

REPORT INFORMATION
  Report Type: Spontaneous
  Country: FR (occurrence: FR)
  Receive Date: 20200507
  Receipt Date: 20200507
  Transmission Date: 20200714
  Serious: Yes (Other)
  Sender: FDA-Public Use
  Company Number: FR-CADILA HEALTHCARE LIMITED-FR-ZYDUS-022462

PATIENT

DRUGS (4)
  1. DIGOXIN. [Suspect]
     Active Substance: DIGOXIN
     Indication: HYDROPS FOETALIS
  2. AMIODARONE [Suspect]
     Active Substance: AMIODARONE
     Indication: FOETAL EXPOSURE DURING PREGNANCY
     Dosage: 600 MILLIGRAM,MATERNAL DOSE: 600 MG, TID,(INTERVAL :8 HOURS)
     Route: 064
  3. DIGOXIN. [Suspect]
     Active Substance: DIGOXIN
     Indication: FOETAL EXPOSURE DURING PREGNANCY
     Dosage: .25 MILLIGRAM,MATERNAL DOSE: 0.25 MG, TID,(INTERVAL :8 HOURS)
     Route: 064
  4. AMIODARONE [Suspect]
     Active Substance: AMIODARONE
     Indication: TACHYCARDIA FOETAL
     Dosage: 200 MILLIGRAM,200 MG, DAILY,(INTERVAL :1 DAYS)
     Route: 064

REACTIONS (4)
  - Tachycardia foetal [Unknown]
  - Hydrops foetalis [Unknown]
  - Condition aggravated [Recovered/Resolved]
  - Foetal exposure during pregnancy [Unknown]
